FAERS Safety Report 14961580 (Version 2)
Quarter: 2018Q3

REPORT INFORMATION
  Report Type: Report from Study
  Country: US (occurrence: US)
  Receive Date: 20180601
  Receipt Date: 20180705
  Transmission Date: 20181010
  Serious: Yes (Other)
  Sender: FDA-Public Use
  Company Number: PHEH2018US020439

PATIENT
  Age: 54 Year
  Sex: Female

DRUGS (2)
  1. GILENYA [Suspect]
     Active Substance: FINGOLIMOD HYDROCHLORIDE
     Dosage: 0.5 MG, QD
     Route: 048
     Dates: start: 20180203
  2. GILENYA [Suspect]
     Active Substance: FINGOLIMOD HYDROCHLORIDE
     Indication: MULTIPLE SCLEROSIS
     Dosage: 0.5 MG, UNK
     Route: 048
     Dates: start: 2014

REACTIONS (10)
  - Sciatica [Recovering/Resolving]
  - Muscle atrophy [Recovering/Resolving]
  - Relapsing-remitting multiple sclerosis [Unknown]
  - Fall [Recovering/Resolving]
  - Lymphopenia [Not Recovered/Not Resolved]
  - Depression [Not Recovered/Not Resolved]
  - Back injury [Recovering/Resolving]
  - Peroneal nerve palsy [Not Recovered/Not Resolved]
  - Optic neuritis [Unknown]
  - Gait inability [Recovering/Resolving]

NARRATIVE: CASE EVENT DATE: 20180420
